FAERS Safety Report 12640769 (Version 2)
Quarter: 2016Q4

REPORT INFORMATION
  Report Type: Spontaneous
  Country: SE (occurrence: SE)
  Receive Date: 20160810
  Receipt Date: 20161103
  Transmission Date: 20170207
  Serious: Yes (Other)
  Sender: FDA-Public Use
  Company Number: SE-SA-2016SA142289

PATIENT
  Age: 46 Year
  Sex: Female

DRUGS (2)
  1. MULTAQ [Suspect]
     Active Substance: DRONEDARONE
     Indication: HEART VALVE STENOSIS
     Route: 048
     Dates: end: 20160711
  2. MULTAQ [Suspect]
     Active Substance: DRONEDARONE
     Indication: CARDIAC DISORDER
     Route: 048
     Dates: end: 20160711

REACTIONS (6)
  - Palpitations [Unknown]
  - Cardiac fibrillation [Unknown]
  - Hypersensitivity [Unknown]
  - Swelling [Unknown]
  - Blister [Unknown]
  - Rash [Unknown]

NARRATIVE: CASE EVENT DATE: 20160707
